FAERS Safety Report 4312610-0 (Version None)
Quarter: 2004Q1

REPORT INFORMATION
  Report Type: 
  Country: None (occurrence: None)
  Receive Date: 20040302
  Receipt Date: 20031219
  Transmission Date: 20041129
  Serious: No
  Sender: FDA-Public Use
  Company Number: 200330497BWH

PATIENT
  Age: 43 Year
  Sex: Male
  Weight: 61.2356 kg

DRUGS (1)
  1. LEVITRA [Suspect]
     Indication: ERECTILE DYSFUNCTION
     Dosage: 10 MG DAILY ORAL
     Route: 048
     Dates: start: 20031201

REACTIONS (1)
  - SCLERAL DISCOLOURATION [None]
